FAERS Safety Report 9123675 (Version 3)
Quarter: 2013Q2

REPORT INFORMATION
  Report Type: Spontaneous
  Country: FR (occurrence: FR)
  Receive Date: 20130227
  Receipt Date: 20130502
  Transmission Date: 20140414
  Serious: Yes (Hospitalization)
  Sender: FDA-Public Use
  Company Number: FR-PFIZER INC-2013069251

PATIENT
  Age: 56 Year
  Sex: Male

DRUGS (16)
  1. TRIATEC [Suspect]
     Indication: HYPERTENSION
     Dosage: 1.5 DF (STRENGTH: 2.5 MG), DAILY
     Route: 048
     Dates: start: 20130104, end: 20130123
  2. EUPRESSYL [Suspect]
     Indication: HYPERTENSION
     Dosage: 3 DF (STRENGTH: 30 MG), DAILY
     Route: 048
     Dates: start: 20130106, end: 20130212
  3. CLAVENTIN [Concomitant]
     Dosage: UNK
  4. CALCIPARINE [Concomitant]
     Dosage: UNK
  5. HUMALOG [Concomitant]
     Dosage: UNK
  6. AMLODIPINE [Concomitant]
     Dosage: UNK
  7. DIAZEPAM [Concomitant]
     Dosage: UNK
  8. FOLIC ACID [Concomitant]
     Dosage: UNK
  9. PANTOPRAZOLE [Concomitant]
     Dosage: UNK
  10. LACTULOSE [Concomitant]
     Dosage: UNK
  11. NICARDIPINE [Concomitant]
     Dosage: UNK
  12. NICOBION [Concomitant]
     Dosage: UNK
  13. PARACETAMOL [Concomitant]
     Dosage: UNK
  14. TRAMADOL [Concomitant]
     Dosage: UNK
  15. VITAMINE B1B6 [Concomitant]
     Dosage: UNK
  16. LANTUS [Concomitant]
     Dosage: UNK

REACTIONS (1)
  - Autoimmune haemolytic anaemia [Recovered/Resolved]
